FAERS Safety Report 9815633 (Version 1)
Quarter: 2014Q1

REPORT INFORMATION
  Report Type: Report from Study
  Country: JP (occurrence: JP)
  Receive Date: 20140114
  Receipt Date: 20140114
  Transmission Date: 20141002
  Serious: Yes (Death, Hospitalization)
  Sender: FDA-Public Use
  Company Number: JP-PFIZER INC-2014007121

PATIENT
  Age: 70 Year
  Sex: Female
  Weight: 36 kg

DRUGS (12)
  1. ADRIACIN [Suspect]
     Indication: ADULT T-CELL LYMPHOMA/LEUKAEMIA
     Dosage: UNK
  2. KW-0761 [Suspect]
     Indication: ADULT T-CELL LYMPHOMA/LEUKAEMIA
     Dosage: 1 MG/KG, WEEKLY (1X/WEEK)
     Route: 041
     Dates: start: 20130307, end: 20130411
  3. KW-0761 [Suspect]
     Dosage: 1 MG/KG, WEEKLY (1X/WEEK)
     Route: 041
     Dates: start: 20130521, end: 20130528
  4. ACETAMINOPHEN [Concomitant]
     Dosage: UNK
     Dates: start: 20130307, end: 20130528
  5. DEXCHLORPHENIRAMINE MALEATE [Concomitant]
     Dosage: UNK
     Dates: start: 20130307, end: 20130528
  6. PREDNISOLONE [Concomitant]
     Dosage: UNK
     Dates: start: 20130521, end: 20130528
  7. TORACONA [Concomitant]
     Dosage: UNK
     Dates: start: 20130313
  8. POLYMYXIN B SULFATE [Concomitant]
     Dosage: UNK
     Dates: start: 20130313
  9. NEXIUM [Concomitant]
     Dosage: UNK
  10. ALLOPURINOL [Concomitant]
     Dosage: UNK
  11. LIPITOR [Concomitant]
     Dosage: UNK
  12. MAGLAX [Concomitant]
     Dosage: UNK

REACTIONS (2)
  - Sepsis [Fatal]
  - Rash maculo-papular [Recovering/Resolving]
